FAERS Safety Report 10534416 (Version 2)
Quarter: 2014Q4

REPORT INFORMATION
  Report Type: Report from Study
  Country: JP (occurrence: JP)
  Receive Date: 20141022
  Receipt Date: 20141111
  Transmission Date: 20150529
  Serious: Yes (Death)
  Sender: FDA-Public Use
  Company Number: JP-SA-2014SA142775

PATIENT
  Sex: Male

DRUGS (8)
  1. HYDROCORTISONE SALT NOT SPECIFIED [Suspect]
     Active Substance: HYDROCORTISONE
     Indication: HORMONE-REFRACTORY PROSTATE CANCER
     Dosage: 30 MG IN MORNING AND 10 MG IN EVENING
     Route: 065
  2. DEXAMETHASONE. [Suspect]
     Active Substance: DEXAMETHASONE
     Indication: HORMONE-REFRACTORY PROSTATE CANCER
     Dosage: ON DAYS 1-3
     Route: 065
  3. DEXAMETHASONE. [Suspect]
     Active Substance: DEXAMETHASONE
     Indication: HORMONE-REFRACTORY PROSTATE CANCER
     Dosage: ON DAYS 1-3
     Route: 065
  4. HYDROCORTISONE SALT NOT SPECIFIED [Suspect]
     Active Substance: HYDROCORTISONE
     Indication: HORMONE-REFRACTORY PROSTATE CANCER
     Dosage: 30 MG IN MORNING AND 10 MG IN EVENING
     Route: 065
  5. TAXOTERE [Suspect]
     Active Substance: DOCETAXEL
     Indication: HORMONE-REFRACTORY PROSTATE CANCER
     Dosage: ADMINISTERED FOR 1 H ON DAY 2; EVERY 3 OR 4 WEEKS?2 VIALS
     Route: 042
  6. ESTRAMUSTINE PHOSPHATE [Suspect]
     Active Substance: ESTRAMUSTINE PHOSPHATE
     Indication: HORMONE-REFRACTORY PROSTATE CANCER
     Dosage: USED FOR FIRST 5 DAYS OF 21 DAY CYCLE
     Route: 065
  7. ESTRAMUSTINE PHOSPHATE [Suspect]
     Active Substance: ESTRAMUSTINE PHOSPHATE
     Indication: HORMONE-REFRACTORY PROSTATE CANCER
     Dosage: USED FOR FIRST 5 DAYS OF 21 DAY CYCLE
     Route: 065
  8. TAXOTERE [Suspect]
     Active Substance: DOCETAXEL
     Indication: HORMONE-REFRACTORY PROSTATE CANCER
     Dosage: ADMINISTERED FOR 1 H ON DAY 2; EVERY 3 OR 4 WEEKS?2 VIALS
     Route: 042

REACTIONS (2)
  - Ventricular fibrillation [Fatal]
  - Myocardial infarction [Fatal]
